FAERS Safety Report 12492593 (Version 3)
Quarter: 2016Q4

REPORT INFORMATION
  Report Type: Spontaneous
  Country: US (occurrence: US)
  Receive Date: 20160623
  Receipt Date: 20161116
  Transmission Date: 20170207
  Serious: No
  Sender: FDA-Public Use
  Company Number: US-GLAXOSMITHKLINE-US2016084570

PATIENT
  Age: 6 Year
  Sex: Female
  Weight: 19.96 kg

DRUGS (1)
  1. FLOVENT [Suspect]
     Active Substance: FLUTICASONE PROPIONATE
     Indication: PNEUMONIA
     Dosage: 2 PUFF(S), QD
     Dates: start: 20160416, end: 20160418

REACTIONS (4)
  - Aggression [Unknown]
  - Abnormal behaviour [Unknown]
  - Irritability [Unknown]
  - Product use issue [Recovered/Resolved]

NARRATIVE: CASE EVENT DATE: 20160416
